FAERS Safety Report 5986115-5 (Version None)
Quarter: 2008Q4

REPORT INFORMATION
  Report Type: 
  Country: None (occurrence: None)
  Receive Date: 20081205
  Receipt Date: 20081205
  Transmission Date: 20090506
  Serious: Yes (Other)
  Sender: FDA-Public Use
  Company Number: None

PATIENT
  Age: 55 Year
  Sex: Female
  Weight: 106.5953 kg

DRUGS (1)
  1. AVELOX [Suspect]
     Indication: EAR INFECTION
     Dosage: 1 TABLET DAY PO
     Route: 048
     Dates: start: 20081124, end: 20081201

REACTIONS (8)
  - DRY MOUTH [None]
  - GRIP STRENGTH DECREASED [None]
  - MENTAL IMPAIRMENT [None]
  - PALPITATIONS [None]
  - POOR QUALITY SLEEP [None]
  - SPEECH DISORDER [None]
  - TREMOR [None]
  - VISION BLURRED [None]
